FAERS Safety Report 8894841 (Version 1)
Quarter: 2012Q4

REPORT INFORMATION
  Report Type: 
  Country: US (occurrence: US)
  Receive Date: 20121108
  Receipt Date: 20121108
  Transmission Date: 20130627
  Serious: Yes (Hospitalization)
  Sender: FDA-Public Use
  Company Number: US-MYLANLABS-2012S1022379

PATIENT
  Age: 89 Year
  Sex: Male

DRUGS (3)
  1. PIPERACILLIN W/TAZOBACTAM          /01606301/ [Suspect]
     Indication: ANTIBIOTIC THERAPY
     Route: 042
  2. AMOXI-CLAVULANICO [Suspect]
     Indication: ANTIBIOTIC THERAPY
     Route: 048
  3. NITROFURANTOIN [Suspect]
     Indication: ANTIBIOTIC THERAPY
     Route: 048

REACTIONS (2)
  - Diarrhoea [Recovered/Resolved]
  - Staphylococcal infection [Not Recovered/Not Resolved]
